FAERS Safety Report 4426138-0 (Version None)
Quarter: 2004Q3

REPORT INFORMATION
  Report Type: 
  Country: None (occurrence: None)
  Receive Date: 20040811
  Receipt Date: 20040728
  Transmission Date: 20050211
  Serious: Yes (Hospitalization)
  Sender: FDA-Public Use
  Company Number: CERZ-10624

PATIENT
  Sex: Female
  Weight: 120 kg

DRUGS (1)
  1. CEREZYME [Suspect]
     Indication: GAUCHER'S DISEASE
     Dosage: 5800 UNITS Q2WS IV
     Route: 042
     Dates: start: 19970226, end: 20040701

REACTIONS (4)
  - CEREBROVASCULAR ACCIDENT [None]
  - ENDOCARDITIS [None]
  - MITRAL VALVE INCOMPETENCE [None]
  - WEIGHT DECREASED [None]
